FAERS Safety Report 23193861 (Version 2)
Quarter: 2023Q4

REPORT INFORMATION
  Report Type: Report from Study
  Country: JP (occurrence: JP)
  Receive Date: 20231116
  Receipt Date: 20231122
  Transmission Date: 20240110
  Serious: Yes (Hospitalization)
  Sender: FDA-Public Use
  Company Number: JP-shionogi-202313024_EXJ_P_1

PATIENT
  Age: 21 Year
  Sex: Male
  Weight: 50.25 kg

DRUGS (12)
  1. CYCLOPHOSPHAMIDE [Suspect]
     Active Substance: CYCLOPHOSPHAMIDE
     Dosage: 40 MG/KG, ONCE A DAY
     Route: 065
     Dates: start: 20231011, end: 20231011
  2. EDOXABAN TOSYLATE [Concomitant]
     Active Substance: EDOXABAN TOSYLATE
     Indication: Splenic vein thrombosis
     Dosage: 30 MG, ONCE A DAY
     Route: 048
     Dates: start: 20231103
  3. FLUCONAZOLE [Concomitant]
     Active Substance: FLUCONAZOLE
     Indication: Infection prophylaxis
     Dosage: 100 MG, ONCE A DAY
     Route: 048
     Dates: start: 20231024
  4. SULFAMETHOXAZOLE\TRIMETHOPRIM [Concomitant]
     Active Substance: SULFAMETHOXAZOLE\TRIMETHOPRIM
     Indication: Infection prophylaxis
     Dosage: 2 DOSAGE FORM, ONE A DAY
     Route: 048
     Dates: start: 20231019
  5. VALACYCLOVIR HYDROCHLORIDE [Concomitant]
     Active Substance: VALACYCLOVIR HYDROCHLORIDE
     Indication: Infection prophylaxis
     Dosage: 500 MG, ONCE A DAY
     Route: 048
     Dates: start: 20231013
  6. RABEPRAZOLE SODIUM [Concomitant]
     Active Substance: RABEPRAZOLE SODIUM
     Indication: Gastritis prophylaxis
     Dosage: 10 MG, ONCE A DAY
     Route: 048
     Dates: start: 20231013
  7. URSODIOL [Concomitant]
     Active Substance: URSODIOL
     Indication: Hypercholia
     Dosage: 200 MG, EVERY 8 HOURS
     Route: 048
     Dates: start: 20231013
  8. ADCIRCA [Concomitant]
     Active Substance: TADALAFIL
     Indication: Pulmonary hypertension
     Dosage: 20 MG, EVERY 12 HOURS
     Route: 048
     Dates: start: 20231007
  9. OPSUMIT [Concomitant]
     Active Substance: MACITENTAN
     Indication: Pulmonary hypertension
     Dosage: 10 MG, ONCE A DAY
     Route: 048
  10. Tolvaptan od [Concomitant]
     Indication: Pulmonary hypertension
     Dosage: 3.75 MG, ONCE A DAY
     Route: 048
     Dates: start: 20231018
  11. FUROSEMIDE [Concomitant]
     Active Substance: FUROSEMIDE
     Indication: Pulmonary hypertension
     Dosage: 20MG, ONCE A DAY
     Route: 048
     Dates: start: 20231031
  12. AMINO ACIDS\CARBOHYDRATES\MINERALS\SOYBEAN OIL\VITAMINS [Concomitant]
     Active Substance: AMINO ACIDS\CARBOHYDRATES\MINERALS\SOYBEAN OIL\VITAMINS
     Indication: Nutritional supplementation
     Dosage: 80 G, EVERY 12 HOURS, ROUTE OF ADMINISTATION: PARENTERAL
     Route: 050
     Dates: start: 20231017

REACTIONS (1)
  - Thrombophlebitis [Recovering/Resolving]

NARRATIVE: CASE EVENT DATE: 20231103
